FAERS Safety Report 6782442-2 (Version None)
Quarter: 2010Q2

REPORT INFORMATION
  Report Type: 
  Country: None (occurrence: None)
  Receive Date: 20100520
  Receipt Date: 20090702
  Transmission Date: 20101027
  Serious: Yes (Other)
  Sender: FDA-Public Use
  Company Number: 2009236271

PATIENT
  Age: 68 Year
  Sex: Female
  Weight: 67 kg

DRUGS (12)
  1. PROVERA [Suspect]
     Indication: HORMONE REPLACEMENT THERAPY
     Dosage: 2.5 MG, ORAL
     Route: 048
     Dates: start: 19930512, end: 19990920
  2. OGEN [Suspect]
     Indication: HORMONE REPLACEMENT THERAPY
     Dosage: 0.625 MG, ORAL
     Route: 048
     Dates: start: 19930512, end: 19950706
  3. OGEN [Suspect]
     Indication: HORMONE REPLACEMENT THERAPY
     Dosage: 1.5 MG
     Dates: start: 19940808, end: 19941122
  4. ORTHO-EST [Suspect]
     Indication: HORMONE REPLACEMENT THERAPY
     Dosage: 0.625 MG
     Dates: start: 19950706, end: 19951117
  5. PREMARIN [Suspect]
     Indication: HORMONE REPLACEMENT THERAPY
     Dosage: 0.3 MG
     Dates: start: 19971219, end: 19990920
  6. PREMPRO [Suspect]
     Indication: HORMONE REPLACEMENT THERAPY
     Dosage: 0.625/2.5MG
     Dates: start: 19951117, end: 19970131
  7. CYCRIN [Suspect]
     Indication: HORMONE REPLACEMENT THERAPY
     Dates: start: 19860101
  8. ZOCOR [Concomitant]
  9. CALTRATE (CALCIUM CARBONATE) [Concomitant]
  10. PREDNISONE TAB [Concomitant]
  11. ZOVIRAX [Concomitant]
  12. ANTIVERT [Concomitant]

REACTIONS (1)
  - PULMONARY EMBOLISM [None]
